FAERS Safety Report 7132344-7 (Version None)
Quarter: 2010Q4

REPORT INFORMATION
  Report Type: 
  Country: None (occurrence: None)
  Receive Date: 20101130
  Receipt Date: 20101130
  Transmission Date: 20110411
  Serious: Yes (Other)
  Sender: FDA-Public Use
  Company Number: None

PATIENT
  Age: 57 Year
  Sex: Male
  Weight: 113.3993 kg

DRUGS (1)
  1. NIASPAN [Suspect]
     Dosage: 750 MG 2 XDAY PO
     Route: 048
     Dates: start: 20101029, end: 20101115

REACTIONS (1)
  - PRURITUS GENERALISED [None]
